FAERS Safety Report 13644386 (Version 1)
Quarter: 2017Q2

REPORT INFORMATION
  Report Type: Spontaneous
  Country: US (occurrence: US)
  Receive Date: 20170612
  Receipt Date: 20170612
  Transmission Date: 20170830
  Serious: No
  Sender: FDA-Public Use
  Company Number: US-ROCHE-1363807

PATIENT
  Age: 81 Year
  Sex: Male

DRUGS (6)
  1. XELODA [Suspect]
     Active Substance: CAPECITABINE
     Indication: COLON CANCER
     Route: 065
     Dates: start: 201309
  2. XELODA [Suspect]
     Active Substance: CAPECITABINE
     Route: 065
  3. XELODA [Suspect]
     Active Substance: CAPECITABINE
     Route: 065
  4. XELODA [Suspect]
     Active Substance: CAPECITABINE
     Route: 065
  5. FLOMAX [Concomitant]
     Active Substance: TAMSULOSIN HYDROCHLORIDE
     Indication: POLLAKIURIA
     Route: 065
  6. XELODA [Suspect]
     Active Substance: CAPECITABINE
     Dosage: 2000 MG IN THE MORNING AND 2000 MG AT NIGHT
     Route: 065
     Dates: start: 201309

REACTIONS (23)
  - Faeces discoloured [Recovered/Resolved]
  - Liver disorder [Unknown]
  - Blood count abnormal [Unknown]
  - Blister [Recovered/Resolved]
  - Sunburn [Unknown]
  - Heart rate irregular [Unknown]
  - Chills [Unknown]
  - Gangrene [Unknown]
  - Colon cancer metastatic [Unknown]
  - Infection [Unknown]
  - Amnesia [Recovered/Resolved]
  - Scleral discolouration [Recovered/Resolved]
  - Blood blister [Unknown]
  - Tremor [Unknown]
  - Drug ineffective [Unknown]
  - Confusional state [Unknown]
  - Pain [Unknown]
  - Diarrhoea [Recovered/Resolved]
  - Clostridium difficile infection [Recovered/Resolved]
  - Skin exfoliation [Unknown]
  - Hypertension [Unknown]
  - Skin discolouration [Unknown]
  - Balance disorder [Recovered/Resolved]

NARRATIVE: CASE EVENT DATE: 201309
